FAERS Safety Report 7211694-X (Version None)
Quarter: 2011Q1

REPORT INFORMATION
  Report Type: 
  Country: None (occurrence: None)
  Receive Date: 20110105
  Receipt Date: 20110104
  Transmission Date: 20110831
  Serious: Yes (Hospitalization, Other)
  Sender: FDA-Public Use
  Company Number: CH-PFIZER INC-2010000165

PATIENT
  Age: 63 Year
  Sex: Male
  Weight: 73.5 kg

DRUGS (6)
  1. MARCOUMAR [Concomitant]
     Dosage: 3 MG, 1X/DAY
     Route: 048
  2. TOREM [Concomitant]
     Dosage: 10 MG, 1X/DAY
     Route: 048
  3. CONCOR [Concomitant]
     Dosage: 5 MG, 1X/DAY
     Route: 048
  4. UNIFYL [Concomitant]
     Dosage: 600 MG, 1X/DAY
     Route: 048
  5. STILNOX [Concomitant]
     Dosage: 10 MG, 1X/DAY
     Route: 048
  6. SUTENT [Suspect]
     Indication: RENAL CANCER
     Dosage: 50 MG, 1X/DAY
     Route: 048
     Dates: start: 20080327, end: 20080402

REACTIONS (1)
  - RENAL FAILURE [None]
